FAERS Safety Report 4381838-6 (Version None)
Quarter: 2004Q2

REPORT INFORMATION
  Report Type: 
  Country: None (occurrence: None)
  Receive Date: 20040603
  Receipt Date: 20030717
  Transmission Date: 20050107
  Serious: Yes (Other)
  Sender: FDA-Public Use
  Company Number: 200316529US

PATIENT
  Sex: Male

DRUGS (1)
  1. LOVENOX [Suspect]
     Dosage: DURATION: A FEW DAYS

REACTIONS (5)
  - FEELING HOT [None]
  - HAEMATOMA [None]
  - OEDEMA [None]
  - PAIN [None]
  - SKIN DISCOLOURATION [None]
